FAERS Safety Report 9959884 (Version 1)
Quarter: 2014Q1

REPORT INFORMATION
  Report Type: Report from Study
  Country: US (occurrence: US)
  Receive Date: 20140305
  Receipt Date: 20140305
  Transmission Date: 20141002
  Serious: No
  Sender: FDA-Public Use
  Company Number: US-ABBVIE-13P-163-1106158-00

PATIENT
  Sex: Male
  Weight: 123.49 kg

DRUGS (7)
  1. HUMIRA [Suspect]
     Indication: ARTHRITIS
     Route: 058
     Dates: start: 2008, end: 20130421
  2. HUMIRA [Suspect]
     Route: 058
     Dates: start: 20130421
  3. UNKNOWN MEDICATION [Concomitant]
     Indication: THYROID DISORDER
  4. CYMBALTA [Concomitant]
     Indication: ANXIETY DISORDER
     Route: 048
  5. VICODIN [Concomitant]
     Indication: PRODUCT USED FOR UNKNOWN INDICATION
  6. PRILOSEC [Concomitant]
     Indication: GASTROOESOPHAGEAL REFLUX DISEASE
  7. NORCO [Concomitant]
     Indication: PRODUCT USED FOR UNKNOWN INDICATION

REACTIONS (2)
  - Injection site pain [Not Recovered/Not Resolved]
  - Drug ineffective [Unknown]
